FAERS Safety Report 6240870-8 (Version None)
Quarter: 2009Q2

REPORT INFORMATION
  Report Type: 
  Country: None (occurrence: None)
  Receive Date: 20090623
  Receipt Date: 20090616
  Transmission Date: 20091009
  Serious: Yes (Life-Threatening, Hospitalization)
  Sender: FDA-Public Use
  Company Number: GB-WYE-G03860309

PATIENT
  Sex: Male
  Weight: 75 kg

DRUGS (1)
  1. VENLAFAXINE HYDROCHLORIDE [Suspect]
     Indication: DEPRESSION
     Dosage: 75MG, FREQUENCY UNSPECIFIED
     Route: 048
     Dates: start: 20060101, end: 20090602

REACTIONS (1)
  - PNEUMONITIS [None]
